FAERS Safety Report 9713607 (Version 3)
Quarter: 2014Q1

REPORT INFORMATION
  Report Type: Spontaneous
  Country: US (occurrence: US)
  Receive Date: 20131126
  Receipt Date: 20140214
  Transmission Date: 20141002
  Serious: Yes (Hospitalization)
  Sender: FDA-Public Use
  Company Number: US-DENDREON CORPORATION-2013PROUSA03311

PATIENT
  Age: 70 Year
  Sex: Male
  Weight: 90.2 kg

DRUGS (23)
  1. PROVENGE [Suspect]
     Indication: PROSTATE CANCER METASTATIC
     Dosage: 250 ML, SINGLE
     Route: 042
     Dates: start: 20131025, end: 20131025
  2. PROVENGE [Suspect]
     Dosage: 250 ML, SINGLE
     Route: 042
     Dates: start: 20131108, end: 20131108
  3. PROVENGE [Suspect]
     Dosage: 250 ML, SINGLE
     Route: 042
     Dates: start: 20131223, end: 20131223
  4. LASIX [Concomitant]
     Dosage: 20 MG, QD
  5. VICODIN [Concomitant]
     Indication: ARTHRALGIA
     Dosage: 1 TABLETS, Q 4 HOURS PRN
  6. PROSCAR [Concomitant]
     Indication: PRODUCT USED FOR UNKNOWN INDICATION
     Dosage: 5 MG, QD
     Route: 048
  7. FLONASE [Concomitant]
     Indication: PRODUCT USED FOR UNKNOWN INDICATION
     Dosage: 2 DF, QD
     Route: 045
  8. INSULIN GLARGINE [Concomitant]
     Dosage: 5IU IN AM, 20IU IN PM
     Route: 058
  9. FENOFIBRATE [Concomitant]
  10. ASCORBIC ACID [Concomitant]
     Route: 048
  11. LOSARTAN [Concomitant]
     Route: 048
  12. VITAMIN D3 [Concomitant]
     Route: 048
  13. LISINOPRIL [Concomitant]
     Route: 048
  14. FISH OIL [Concomitant]
  15. EXLAX [Concomitant]
     Route: 048
  16. ZOCOR [Concomitant]
     Route: 048
  17. OSCAL 500+D [Concomitant]
     Dosage: 1 TABLETS, BID
     Route: 048
  18. MULTIVITAMINS WITH FLUORIDE [Concomitant]
     Route: 048
  19. FLOMAX [Concomitant]
     Indication: PRODUCT USED FOR UNKNOWN INDICATION
     Dosage: 0.4 MG, QD
     Route: 048
  20. LEVAQUIN [Concomitant]
     Dosage: 750 MG, QD
     Route: 048
  21. NORCO [Concomitant]
     Indication: PAIN
     Dosage: 1-2 TABLETS, Q 4 HOURS PRN
     Route: 048
  22. ZYTIGA [Concomitant]
     Indication: PROSTATE CANCER
     Dosage: 250 MG, QID
     Route: 048
     Dates: start: 20140102
  23. PREDNISONE [Concomitant]
     Indication: PROSTATE CANCER
     Dosage: 5 MG, BID
     Route: 048
     Dates: start: 20140102

REACTIONS (3)
  - Cardiac failure congestive [Recovered/Resolved]
  - Haemoglobin decreased [Unknown]
  - Asthenia [Unknown]
